FAERS Safety Report 8921491 (Version 1)
Quarter: 2012Q4

REPORT INFORMATION
  Report Type: 
  Country: BR (occurrence: BR)
  Receive Date: 20121122
  Receipt Date: 20121122
  Transmission Date: 20130627
  Serious: Yes (Hospitalization, Other)
  Sender: FDA-Public Use
  Company Number: PHHY2012BR105618

PATIENT

DRUGS (1)
  1. ACLASTA [Suspect]
     Dosage: 5 mg, UNK
     Route: 042

REACTIONS (5)
  - Convulsion [Unknown]
  - Arrhythmia [Unknown]
  - Hypocalcaemia [Unknown]
  - Agitation [Unknown]
  - Formication [Unknown]
